FAERS Safety Report 16991941 (Version 1)
Quarter: 2019Q4

REPORT INFORMATION
  Report Type: Spontaneous
  Country: US (occurrence: US)
  Receive Date: 20191104
  Receipt Date: 20191104
  Transmission Date: 20200122
  Serious: No
  Sender: FDA-Public Use
  Company Number: US-JNJFOC-20191038521

PATIENT
  Age: 50 Year
  Sex: Female
  Weight: 79.45 kg

DRUGS (1)
  1. WOMENS ROGAINE [Suspect]
     Active Substance: MINOXIDIL
     Indication: ALOPECIA
     Dosage: 1ML TWICE DAILY
     Route: 061
     Dates: start: 20191014

REACTIONS (3)
  - Application site dryness [Recovered/Resolved]
  - Pruritus [Recovered/Resolved]
  - Application site irritation [Recovered/Resolved]

NARRATIVE: CASE EVENT DATE: 20191014
